FAERS Safety Report 7167571-6 (Version None)
Quarter: 2010Q4

REPORT INFORMATION
  Report Type: 
  Country: None (occurrence: None)
  Receive Date: 20101216
  Receipt Date: 20100409
  Transmission Date: 20110411
  Serious: No
  Sender: FDA-Public Use
  Company Number: A0854465A

PATIENT
  Age: 52 Year
  Sex: Female

DRUGS (4)
  1. NICOTINE POLACRILEX [Suspect]
  2. NICORETTE [Suspect]
  3. NICORETTE [Suspect]
  4. NICOTINE [Concomitant]

REACTIONS (6)
  - DEFAECATION URGENCY [None]
  - DIZZINESS [None]
  - FATIGUE [None]
  - HOT FLUSH [None]
  - INTENTIONAL DRUG MISUSE [None]
  - NAUSEA [None]
